FAERS Safety Report 8573606-6 (Version None)
Quarter: 2012Q2

REPORT INFORMATION
  Report Type: 
  Country: None (occurrence: None)
  Receive Date: 20120423
  Receipt Date: 20091102
  Transmission Date: 20120825
  Serious: Yes (Hospitalization)
  Sender: FDA-Public Use
  Company Number: PHEH2009US11275

PATIENT
  Age: 29 Year
  Sex: Female

DRUGS (4)
  1. EXJADE [Suspect]
     Indication: SICKLE CELL ANAEMIA
     Dosage: 1500 MG DAILY, ORAL
     Route: 048
     Dates: start: 20090601
  2. EXJADE [Suspect]
     Indication: IRON OVERLOAD
     Dosage: 1500 MG DAILY, ORAL
     Route: 048
     Dates: start: 20090601
  3. EXJADE [Suspect]
     Indication: SICKLE CELL ANAEMIA
     Dosage: 1500 MG DAILY, ORAL
     Route: 048
     Dates: start: 20080430
  4. EXJADE [Suspect]
     Indication: IRON OVERLOAD
     Dosage: 1500 MG DAILY, ORAL
     Route: 048
     Dates: start: 20080430

REACTIONS (2)
  - SICKLE CELL ANAEMIA WITH CRISIS [None]
  - SERUM FERRITIN INCREASED [None]
